FAERS Safety Report 11087079 (Version 1)
Quarter: 2015Q2

REPORT INFORMATION
  Report Type: Spontaneous
  Country: US (occurrence: None)
  Receive Date: 20150501
  Receipt Date: 20150501
  Transmission Date: 20150821
  Serious: Yes (Other)
  Sender: FDA-Public Use
  Company Number: None

PATIENT
  Age: 78 Year
  Sex: Female
  Weight: 63.5 kg

DRUGS (12)
  1. METOPROLOL [Concomitant]
     Active Substance: METOPROLOL
  2. MILK THISTLE [Concomitant]
     Active Substance: MILK THISTLE
  3. BIOTIN [Concomitant]
     Active Substance: BIOTIN
  4. ZINC [Concomitant]
     Active Substance: ZINC\ZINC CHLORIDE
  5. D-3 [Concomitant]
     Active Substance: CHOLECALCIFEROL
  6. COENZYME Q10 [Concomitant]
     Active Substance: UBIDECARENONE
  7. VITAMIN B12 [Concomitant]
     Active Substance: CYANOCOBALAMIN
  8. MAGNESIUM [Concomitant]
     Active Substance: MAGNESIUM
  9. CALCIUM [Concomitant]
     Active Substance: CALCIUM
  10. ASPIRIN. [Concomitant]
     Active Substance: ASPIRIN
  11. B-36 [Concomitant]
  12. PROLIA [Suspect]
     Active Substance: DENOSUMAB
     Indication: OSTEOPOROSIS
     Dosage: 03/12/2015 TO 09/15/2015

REACTIONS (1)
  - Ventricular extrasystoles [None]

NARRATIVE: CASE EVENT DATE: 20150315
